FAERS Safety Report 9960053 (Version 1)
Quarter: 2014Q1

REPORT INFORMATION
  Report Type: Report from Study
  Country: US (occurrence: US)
  Receive Date: 20140305
  Receipt Date: 20140305
  Transmission Date: 20141002
  Serious: No
  Sender: FDA-Public Use
  Company Number: US-ABBVIE-13P-163-1105014-00

PATIENT
  Age: 24 Year
  Sex: Female

DRUGS (14)
  1. HUMIRA [Suspect]
     Indication: CROHN^S DISEASE
     Dates: start: 20130517
  2. HUMIRA [Suspect]
     Dates: start: 20130531
  3. INDERAL LA [Concomitant]
     Indication: PRODUCT USED FOR UNKNOWN INDICATION
  4. SINGULAIR [Concomitant]
     Indication: ASTHMA
  5. DESOGEN [Concomitant]
     Indication: CONTRACEPTION
  6. DONNATAL [Concomitant]
     Indication: CROHN^S DISEASE
     Dosage: ONLY ONE DOSE
  7. OMEPRAZOLE [Concomitant]
     Indication: CROHN^S DISEASE
  8. PENTASA [Concomitant]
     Indication: CROHN^S DISEASE
  9. FLEXERIL [Concomitant]
     Indication: FIBROMYALGIA
  10. ZOFRAN [Concomitant]
     Indication: CROHN^S DISEASE
  11. ZOFRAN [Concomitant]
     Indication: MIGRAINE
  12. CYMBALTA [Concomitant]
     Indication: FIBROMYALGIA
  13. MOBIC [Concomitant]
     Indication: FIBROMYALGIA
  14. FLUNARIZINE [Concomitant]
     Indication: MIGRAINE

REACTIONS (3)
  - Swelling face [Not Recovered/Not Resolved]
  - Lymphadenopathy [Not Recovered/Not Resolved]
  - Rash erythematous [Not Recovered/Not Resolved]
